FAERS Safety Report 23768225 (Version 1)
Quarter: 2024Q2

REPORT INFORMATION
  Report Type: Other
  Country: US (occurrence: None)
  Receive Date: 20240422
  Receipt Date: 20240422
  Transmission Date: 20240716
  Serious: Yes (Hospitalization, Other)
  Sender: FDA-Public Use
  Company Number: US-ROCHE-3544701

PATIENT
  Age: 60 Year
  Sex: Female
  Weight: 112.14 kg

DRUGS (2)
  1. OCREVUS [Suspect]
     Active Substance: OCRELIZUMAB
     Indication: Multiple sclerosis
     Dosage: DATE OF TREATMENT 12/DEC/2018, 29/NOV/2021, 05/MAY/2021, 19/OCT/2020, 19/OCT/2020, 20/APR/2020, 24/O
     Route: 065
  2. BACLOFEN [Concomitant]
     Active Substance: BACLOFEN

REACTIONS (5)
  - Infection [Not Recovered/Not Resolved]
  - Urinary tract infection [Not Recovered/Not Resolved]
  - Hallucination [Unknown]
  - Diarrhoea [Recovered/Resolved]
  - Blood cholesterol increased [Unknown]

NARRATIVE: CASE EVENT DATE: 20240101
